FAERS Safety Report 4396650-1 (Version None)
Quarter: 2004Q3

REPORT INFORMATION
  Report Type: 
  Country: None (occurrence: None)
  Receive Date: 20040709
  Receipt Date: 20040618
  Transmission Date: 20050211
  Serious: Yes (Hospitalization)
  Sender: FDA-Public Use
  Company Number: 2004IM000251

PATIENT
  Age: 74 Year
  Sex: Male

DRUGS (4)
  1. ADVAFERON (A643_INTERFERON ALFACON-1) [Suspect]
     Indication: HEPATITIS C
     Dosage: 18 MU;QOD;SUBCUTANEOUS
     Route: 058
     Dates: start: 20020308
  2. NIFEDIPINE [Concomitant]
  3. TRANDOLAPRIL [Concomitant]
  4. REBAMIPIDE [Concomitant]

REACTIONS (4)
  - PLATELET COUNT DECREASED [None]
  - PYREXIA [None]
  - RHEUMATOID ARTHRITIS [None]
  - SYSTEMIC LUPUS ERYTHEMATOSUS [None]
